FAERS Safety Report 9807792 (Version 2)
Quarter: 2014Q1

REPORT INFORMATION
  Report Type: Spontaneous
  Country: US (occurrence: US)
  Receive Date: 20140110
  Receipt Date: 20140110
  Transmission Date: 20141002
  Serious: No
  Sender: FDA-Public Use
  Company Number: US-GILEAD-2013-0086913

PATIENT
  Age: 84 Year
  Sex: Female

DRUGS (2)
  1. LETAIRIS [Suspect]
     Indication: PULMONARY HYPERTENSION
     Dosage: 5 MG, QD
     Route: 048
     Dates: start: 20130613
  2. LETAIRIS [Suspect]
     Indication: PULMONARY FIBROSIS

REACTIONS (3)
  - Skin discolouration [Unknown]
  - Weight increased [Unknown]
  - Dermatitis allergic [Recovered/Resolved]
